FAERS Safety Report 15311504 (Version 3)
Quarter: 2018Q4

REPORT INFORMATION
  Report Type: Spontaneous
  Country: US (occurrence: US)
  Receive Date: 20180823
  Receipt Date: 20181003
  Transmission Date: 20190204
  Serious: Yes (Hospitalization, Other)
  Sender: FDA-Public Use
  Company Number: US-PFIZER INC-2018335507

PATIENT
  Age: 35 Year
  Sex: Male

DRUGS (7)
  1. DILANTIN [Suspect]
     Active Substance: PHENYTOIN
     Indication: FOCAL DYSCOGNITIVE SEIZURES
     Dosage: 7 DF, UNK (100 MGS; 7 TABLETS)
     Dates: start: 1981, end: 1996
  2. LAMICTAL [Suspect]
     Active Substance: LAMOTRIGINE
     Dosage: 550 MG, 1X/DAY (QD)
  3. LAMICTAL [Suspect]
     Active Substance: LAMOTRIGINE
     Dosage: 900 MG, UNK
  4. LAMICTAL [Suspect]
     Active Substance: LAMOTRIGINE
     Indication: FOCAL DYSCOGNITIVE SEIZURES
     Dosage: 100 MG, UNK
     Dates: start: 1996
  5. CLONAZEPAM. [Concomitant]
     Active Substance: CLONAZEPAM
     Indication: GENERALISED TONIC-CLONIC SEIZURE
     Dosage: 5 MG, 3X/DAY
     Dates: start: 2009
  6. LAMICTAL [Suspect]
     Active Substance: LAMOTRIGINE
     Dosage: 350 MG, DAILY (100 MG; AM 200, PM )
  7. LAMICTAL [Suspect]
     Active Substance: LAMOTRIGINE
     Dosage: 550 MG, DAILY (CURRENTLY TAKING 200 MG AT 6 AM AND TAKING 350 MG AT 6 PM.))

REACTIONS (13)
  - Rotator cuff syndrome [Unknown]
  - Amnesia [Recovered/Resolved]
  - Upper limb fracture [Not Recovered/Not Resolved]
  - Generalised tonic-clonic seizure [Not Recovered/Not Resolved]
  - Fall [Not Recovered/Not Resolved]
  - Movement disorder [Not Recovered/Not Resolved]
  - Osteonecrosis [Not Recovered/Not Resolved]
  - Humerus fracture [Not Recovered/Not Resolved]
  - Seizure [Unknown]
  - Periarthritis [Not Recovered/Not Resolved]
  - Arthropathy [Not Recovered/Not Resolved]
  - Femur fracture [Unknown]
  - Rash [Unknown]

NARRATIVE: CASE EVENT DATE: 199607
